FAERS Safety Report 7197344-X (Version None)
Quarter: 2010Q4

REPORT INFORMATION
  Report Type: 
  Country: None (occurrence: None)
  Receive Date: 20101227
  Receipt Date: 20101216
  Transmission Date: 20110411
  Serious: Yes (Hospitalization, Other)
  Sender: FDA-Public Use
  Company Number: FR-PFIZER INC-2010178428

PATIENT
  Age: 66 Year
  Sex: Male

DRUGS (11)
  1. CISPLATIN [Suspect]
     Indication: BONE SARCOMA
     Dosage: 190 MG, CYCLIC
     Route: 065
     Dates: start: 20081113, end: 20081113
  2. DOXORUBICIN HCL [Suspect]
     Indication: BONE SARCOMA
     Dosage: 100 MG, CYCLIC
     Route: 065
     Dates: start: 20080825, end: 20081113
  3. HOLOXAN [Suspect]
     Indication: BONE SARCOMA
     Dosage: 5760 MG, CYCLIC
     Route: 065
     Dates: start: 20080825, end: 20081115
  4. HOLOXAN [Suspect]
     Dosage: 4540 MG, UNK
     Dates: start: 20080825, end: 20081115
  5. HOLOXAN [Suspect]
     Dosage: 5640 MG, UNK
     Dates: start: 20080825, end: 20081115
  6. UROMITEXAN [Suspect]
     Indication: BONE SARCOMA
     Dosage: 6910 MG, CYCLIC
     Route: 065
     Dates: start: 20080825, end: 20081115
  7. UROMITEXAN [Suspect]
     Dosage: 7160 MG, CYCLIC
     Route: 065
     Dates: start: 20080825, end: 20081115
  8. UROMITEXAN [Suspect]
     Dosage: 5100 MG, UNK
     Dates: start: 20080825, end: 20081115
  9. UROMITEXAN [Suspect]
     Dosage: 6770 MG, UNK
     Dates: start: 20080825, end: 20081115
  10. ZOPHREN [Concomitant]
     Dosage: 8 MG, CYCLIC
     Route: 065
     Dates: start: 20080825, end: 20081115
  11. METHYLPREDNISOLONE [Concomitant]
     Dosage: 60 MG, CYCLIC
     Route: 065
     Dates: start: 20080825, end: 20081115

REACTIONS (11)
  - ATRIAL FIBRILLATION [None]
  - CACHEXIA [None]
  - CARDIOMYOPATHY [None]
  - DYSPNOEA [None]
  - MUCOSAL INFLAMMATION [None]
  - NEUROPATHY PERIPHERAL [None]
  - ORAL FUNGAL INFECTION [None]
  - PYREXIA [None]
  - RENAL FAILURE ACUTE [None]
  - SEPSIS [None]
  - WEIGHT DECREASED [None]
